FAERS Safety Report 6470572-4 (Version None)
Quarter: 2009Q4

REPORT INFORMATION
  Report Type: 
  Country: None (occurrence: None)
  Receive Date: 20091119
  Receipt Date: 20090819
  Transmission Date: 20100525
  Serious: Yes (Other)
  Sender: FDA-Public Use
  Company Number: WAES 0908USA03466

PATIENT
  Sex: Male

DRUGS (2)
  1. JANUVIA [Suspect]
     Indication: BLOOD GLUCOSE INCREASED
     Dosage: 100MG/DAILY/PO
     Route: 048
     Dates: start: 20081101, end: 20090701
  2. METFORMIN [Concomitant]

REACTIONS (1)
  - HEPATIC ENZYME INCREASED [None]
